FAERS Safety Report 9692975 (Version 1)
Quarter: 2013Q4

REPORT INFORMATION
  Report Type: Report from Study
  Country: FR (occurrence: BJ)
  Receive Date: 20131118
  Receipt Date: 20131118
  Transmission Date: 20140711
  Serious: Yes (Death)
  Sender: FDA-Public Use
  Company Number: BJ-B.I. PHARMACEUTICALS,INC./RIDGEFIELD-2013-BI-37447GD

PATIENT
  Sex: 0

DRUGS (6)
  1. VIRAMUNE [Suspect]
     Indication: PROPHYLAXIS AGAINST HIV INFECTION
  2. VIRAMUNE [Suspect]
     Route: 064
  3. ZIDOVUDINE [Suspect]
     Indication: PROPHYLAXIS AGAINST HIV INFECTION
  4. LAMIVUDINE [Suspect]
     Indication: PROPHYLAXIS AGAINST HIV INFECTION
  5. LAMIVUDINE [Suspect]
     Route: 064
  6. STAVUDINE [Suspect]
     Indication: PROPHYLAXIS AGAINST HIV INFECTION
     Route: 064

REACTIONS (2)
  - Death [Fatal]
  - HIV test positive [Unknown]
